FAERS Safety Report 9344049 (Version 2)
Quarter: 2013Q3

REPORT INFORMATION
  Report Type: Spontaneous
  Country: JP (occurrence: JP)
  Receive Date: 20130612
  Receipt Date: 20130802
  Transmission Date: 20140515
  Serious: Yes (Life-Threatening, Hospitalization, Other)
  Sender: FDA-Public Use
  Company Number: JP-BRISTOL-MYERS SQUIBB COMPANY-18995076

PATIENT
  Age: 83 Year
  Sex: Male
  Weight: 46 kg

DRUGS (1)
  1. ERBITUX SOLN FOR INF 5MG/ML [Suspect]
     Indication: LARYNGEAL CANCER
     Dosage: ON 19APR13:400MG/M2?UNK-14MAY13:DOSE REDUCED:250MG/M2?NO OF COURSE-4
     Route: 041
     Dates: start: 20130419, end: 20130514

REACTIONS (5)
  - Rectal ulcer haemorrhage [Recovered/Resolved]
  - Prerenal failure [Unknown]
  - Mucosal inflammation [Unknown]
  - Dehydration [Unknown]
  - Diarrhoea [Unknown]
